FAERS Safety Report 5600095-3 (Version None)
Quarter: 2008Q1

REPORT INFORMATION
  Report Type: 
  Country: None (occurrence: None)
  Receive Date: 20080123
  Receipt Date: 20080118
  Transmission Date: 20080703
  Serious: Yes (Other)
  Sender: FDA-Public Use
  Company Number: A0704137A

PATIENT
  Age: 42 Year
  Sex: Female

DRUGS (2)
  1. VALTREX [Suspect]
     Indication: HERPES ZOSTER
     Dosage: 1000MG THREE TIMES PER DAY
     Route: 048
     Dates: start: 20080109
  2. NO CONCURRENT MEDICATION [Concomitant]

REACTIONS (3)
  - MANIA [None]
  - NERVOUSNESS [None]
  - ROAD TRAFFIC ACCIDENT [None]
